FAERS Safety Report 6653838-4 (Version None)
Quarter: 2010Q1

REPORT INFORMATION
  Report Type: 
  Country: None (occurrence: None)
  Receive Date: 20100326
  Receipt Date: 20100318
  Transmission Date: 20100710
  Serious: Yes (Disabling)
  Sender: FDA-Public Use
  Company Number: B0640931A

PATIENT
  Age: 73 Year
  Sex: Female
  Weight: 106 kg

DRUGS (5)
  1. MALARONE [Suspect]
     Indication: MALARIA PROPHYLAXIS
     Route: 048
  2. IBUPROFEN [Concomitant]
     Indication: PAIN
     Dosage: 1200MG PER DAY
     Route: 048
     Dates: start: 20091201
  3. LEVOTHYROXINE SODIUM [Concomitant]
     Indication: THYROID DISORDER
     Route: 048
     Dates: start: 20040101
  4. IRBESARTAN [Concomitant]
     Dosage: 150MG PER DAY
     Route: 048
     Dates: start: 20060101
  5. OMEPRAZOLE [Concomitant]
     Route: 048
     Dates: start: 20091201

REACTIONS (1)
  - RHEUMATOID ARTHRITIS [None]
